FAERS Safety Report 22064929 (Version 3)
Quarter: 2023Q2

REPORT INFORMATION
  Report Type: Spontaneous
  Country: US (occurrence: US)
  Receive Date: 20230306
  Receipt Date: 20230609
  Transmission Date: 20230722
  Serious: No
  Sender: FDA-Public Use
  Company Number: US-BRISTOL-MYERS SQUIBB COMPANY-2023-031095

PATIENT
  Age: 66 Year
  Sex: Female

DRUGS (2)
  1. ORENCIA [Suspect]
     Active Substance: ABATACEPT
     Indication: Product used for unknown indication
     Dosage: DOSE : 125MG;     FREQ : EVERY 7 DAYS
     Route: 058
  2. ORENCIA [Suspect]
     Active Substance: ABATACEPT
     Route: 042
     Dates: start: 20230306

REACTIONS (6)
  - Pain [Unknown]
  - Headache [Unknown]
  - Nausea [Unknown]
  - Fatigue [Unknown]
  - Nasal congestion [Unknown]
  - Oropharyngeal pain [Unknown]
